FAERS Safety Report 9692212 (Version 1)
Quarter: 2013Q4

REPORT INFORMATION
  Report Type: Spontaneous
  Country: US (occurrence: US)
  Receive Date: 20131118
  Receipt Date: 20131118
  Transmission Date: 20140711
  Serious: No
  Sender: FDA-Public Use
  Company Number: US-009507513-1311USA003524

PATIENT
  Sex: Female

DRUGS (7)
  1. VICTRELIS [Suspect]
     Indication: HEPATITIS C
     Dosage: 800 MG, TID, WITH MEAL OR LIGHT SNACK
     Route: 048
  2. RIBAVIRIN [Suspect]
  3. PEGASYS [Suspect]
  4. MUCINEX [Concomitant]
  5. PROZAC [Concomitant]
  6. CALCIUM (UNSPECIFIED) (+) VITAMIN D (UNSPECIFIED) [Concomitant]
  7. TYLENOL [Concomitant]

REACTIONS (13)
  - Paranasal sinus hypersecretion [Unknown]
  - Throat irritation [Unknown]
  - Extra dose administered [Unknown]
  - Disturbance in attention [Unknown]
  - Anxiety [Unknown]
  - Cough [Unknown]
  - Myalgia [Unknown]
  - Vomiting [Unknown]
  - Irritability [Unknown]
  - Fatigue [Unknown]
  - Dysgeusia [Unknown]
  - Anaemia [Unknown]
  - Red blood cell count decreased [Unknown]
